FAERS Safety Report 10277588 (Version 3)
Quarter: 2014Q3

REPORT INFORMATION
  Report Type: Spontaneous
  Country: JP (occurrence: JP)
  Receive Date: 20140704
  Receipt Date: 20140715
  Transmission Date: 20150326
  Serious: Yes (Hospitalization, Other)
  Sender: FDA-Public Use
  Company Number: JP-BRISTOL-MYERS SQUIBB COMPANY-20751269

PATIENT
  Age: 58 Year
  Sex: Male
  Weight: 105 kg

DRUGS (11)
  1. MAGMITT [Concomitant]
     Active Substance: MAGNESIUM OXIDE
  2. RENIVACE [Concomitant]
     Active Substance: ENALAPRIL
     Dosage: 2.5MG/DAY
     Dates: start: 20131102
  3. ARTIST [Concomitant]
     Active Substance: CARVEDILOL
     Dates: start: 20131104
  4. EUGLUCON [Concomitant]
     Active Substance: GLYBURIDE
     Route: 048
  5. FEBUXOSTAT. [Concomitant]
     Active Substance: FEBUXOSTAT
     Dosage: TRADE NAME: FEBURIC
     Dates: start: 20140115
  6. PLAVIX [Suspect]
     Active Substance: CLOPIDOGREL BISULFATE
     Dates: start: 20131031
  7. PARIET [Concomitant]
     Active Substance: RABEPRAZOLE SODIUM
     Dates: start: 20131106
  8. METGLUCO [Concomitant]
     Active Substance: METFORMIN HYDROCHLORIDE
     Dosage: 250MG 2*/DAY
     Route: 048
  9. ELIQUIS [Suspect]
     Active Substance: APIXABAN
     Indication: CEREBROVASCULAR ACCIDENT PROPHYLAXIS
     Dosage: INTRPTD ON 16APR14?2.5MG ONCE DAY.?RESTARTED ON UNK DATE
     Route: 048
     Dates: start: 20131127
  10. BAYASPIRIN [Suspect]
     Active Substance: ASPIRIN
     Dates: start: 20131031
  11. CRESTOR [Concomitant]
     Active Substance: ROSUVASTATIN CALCIUM
     Route: 048
     Dates: start: 20131102

REACTIONS (3)
  - Cardiac failure congestive [Recovering/Resolving]
  - Liver disorder [Not Recovered/Not Resolved]
  - Haemorrhagic cerebral infarction [Recovering/Resolving]

NARRATIVE: CASE EVENT DATE: 20140327
